FAERS Safety Report 8219731-0 (Version None)
Quarter: 2012Q1

REPORT INFORMATION
  Report Type: 
  Country: None (occurrence: None)
  Receive Date: 20120319
  Receipt Date: 20120306
  Transmission Date: 20120608
  Serious: No
  Sender: FDA-Public Use
  Company Number: CA-ELI_LILLY_AND_COMPANY-CA201201002286

PATIENT
  Age: 54 Year
  Sex: Female
  Weight: 71 kg

DRUGS (6)
  1. AMITRIPTYLINE HCL [Concomitant]
     Dosage: .5 DF, QD
  2. FORTEO [Suspect]
     Indication: OSTEOPOROSIS
     Dosage: 20 UG, QD
     Route: 058
     Dates: start: 20101213
  3. PREVACID [Concomitant]
     Dosage: 30 MG, QD
  4. PROPRANOLOL [Concomitant]
     Dosage: 20 MG, BID
  5. METFORMIN HYDROCHLORIDE [Concomitant]
     Dosage: 500 MG, BID
  6. LIPITOR [Concomitant]
     Dosage: 10 MG, QD

REACTIONS (1)
  - NO ADVERSE EVENT [None]
